FAERS Safety Report 5907682-3 (Version None)
Quarter: 2008Q4

REPORT INFORMATION
  Report Type: 
  Country: None (occurrence: None)
  Receive Date: 20081003
  Receipt Date: 19980821
  Transmission Date: 20090506
  Serious: Yes (Death, Other)
  Sender: FDA-Public Use
  Company Number: US-ROCHE-104868

PATIENT
  Age: 61 Year
  Sex: Male

DRUGS (2)
  1. TORADOL [Suspect]
     Route: 051
  2. TORADOL [Suspect]
     Route: 051

REACTIONS (3)
  - DEATH [None]
  - DEMENTIA [None]
  - RENAL FAILURE [None]
